FAERS Safety Report 4613919-3 (Version None)
Quarter: 2005Q1

REPORT INFORMATION
  Report Type: 
  Country: None (occurrence: None)
  Receive Date: 20050321
  Receipt Date: 20050311
  Transmission Date: 20050727
  Serious: Yes (Hospitalization)
  Sender: FDA-Public Use
  Company Number: FR-GLAXOSMITHKLINE-B0375117A

PATIENT
  Age: 48 Year
  Sex: Male

DRUGS (6)
  1. ZYBAN [Suspect]
     Indication: SMOKING CESSATION THERAPY
     Dosage: 1TABS PER DAY
     Route: 048
     Dates: start: 20050218, end: 20050220
  2. PRAVASTATIN [Concomitant]
     Dosage: 40MG PER DAY
     Route: 065
  3. SECTRAL [Concomitant]
     Dosage: 50MG PER DAY
     Route: 048
  4. TRIATEC 2.5 [Concomitant]
     Route: 065
  5. LEXOMIL [Concomitant]
     Dosage: .25UD SEE DOSAGE TEXT
     Route: 048
  6. KARDEGIC 160 [Concomitant]
     Dosage: 160MG PER DAY
     Route: 065

REACTIONS (6)
  - ABNORMAL BEHAVIOUR [None]
  - AGGRESSION [None]
  - INSOMNIA [None]
  - OVERDOSE [None]
  - SUICIDAL IDEATION [None]
  - SUICIDE ATTEMPT [None]
